FAERS Safety Report 14368642 (Version 4)
Quarter: 2018Q2

REPORT INFORMATION
  Report Type: Spontaneous
  Country: US (occurrence: US)
  Receive Date: 20180109
  Receipt Date: 20180511
  Transmission Date: 20180711
  Serious: No
  Sender: FDA-Public Use
  Company Number: US-PFIZER INC-2017545538

PATIENT
  Age: 70 Year
  Sex: Female

DRUGS (1)
  1. XELJANZ XR [Suspect]
     Active Substance: TOFACITINIB CITRATE
     Dosage: 11 MG, UNK
     Dates: start: 201707

REACTIONS (5)
  - Rash [Unknown]
  - Urticaria [Unknown]
  - Pain in extremity [Unknown]
  - Rash pruritic [Unknown]
  - Burning sensation [Unknown]
